FAERS Safety Report 24752518 (Version 1)
Quarter: 2024Q4

REPORT INFORMATION
  Report Type: Spontaneous
  Country: GB (occurrence: GB)
  Receive Date: 20241219
  Receipt Date: 20241219
  Transmission Date: 20250115
  Serious: Yes (Hospitalization, Other)
  Sender: Kenvue
  Company Number: GB-KENVUE-20241203370

PATIENT

DRUGS (1)
  1. MINOXIDIL [Suspect]
     Active Substance: MINOXIDIL
     Indication: Alopecia
     Dosage: 1 GRAM, TWICE A DAY
     Route: 061
     Dates: start: 20241105, end: 2024

REACTIONS (9)
  - Loss of consciousness [Recovered/Resolved]
  - Application site acne [Recovering/Resolving]
  - Visual impairment [Recovering/Resolving]
  - Application site warmth [Recovering/Resolving]
  - Malaise [Recovering/Resolving]
  - Inflammation [Recovering/Resolving]
  - Application site pain [Recovering/Resolving]
  - Application site pruritus [Recovering/Resolving]
  - Application site swelling [Recovering/Resolving]

NARRATIVE: CASE EVENT DATE: 20241106
